FAERS Safety Report 6039233-X (Version None)
Quarter: 2009Q1

REPORT INFORMATION
  Report Type: 
  Country: None (occurrence: None)
  Receive Date: 20090115
  Receipt Date: 20090107
  Transmission Date: 20090719
  Serious: Yes (Other)
  Sender: FDA-Public Use
  Company Number: PHEH2009US00519

PATIENT
  Sex: Male

DRUGS (9)
  1. ZOMETA [Suspect]
     Indication: MULTIPLE MYELOMA
     Dosage: 4 MG, QMO
     Route: 042
     Dates: start: 20031001, end: 20040901
  2. ZOMETA [Suspect]
     Dosage: 4 MG, QMO
     Route: 042
     Dates: start: 20050201, end: 20061201
  3. THALIDOMIDE [Concomitant]
  4. LIPITOR [Concomitant]
  5. PLAVIX [Concomitant]
  6. PAXIL [Concomitant]
  7. WELLBUTRIN [Concomitant]
  8. LAMICTAL ^BURROUGHS WELLCOME^ [Concomitant]
  9. FOLIC ACID [Concomitant]

REACTIONS (1)
  - BONE DISORDER [None]
